FAERS Safety Report 23743058 (Version 2)
Quarter: 2024Q2

REPORT INFORMATION
  Report Type: Spontaneous
  Country: US (occurrence: US)
  Receive Date: 20240415
  Receipt Date: 20240516
  Transmission Date: 20240716
  Serious: No
  Sender: FDA-Public Use
  Company Number: US-PFIZER INC-202400084877

PATIENT
  Age: 42 Year
  Sex: Male

DRUGS (1)
  1. OXBRYTA [Suspect]
     Active Substance: VOXELOTOR
     Dosage: (300MG TABLETS FOR A TOTAL DOSE OF 900MG) IN 3 TEASPOONS OF CLEAR LIQUID
     Route: 048

REACTIONS (1)
  - Abdominal discomfort [Unknown]
